FAERS Safety Report 10746389 (Version 1)
Quarter: 2015Q1

REPORT INFORMATION
  Report Type: Report from Study
  Country: US (occurrence: US)
  Receive Date: 20150128
  Receipt Date: 20150128
  Transmission Date: 20150721
  Serious: Yes (Death)
  Sender: FDA-Public Use
  Company Number: US-INTERMUNE, INC.-201501IM008885

PATIENT
  Age: 93 Year
  Sex: Female

DRUGS (24)
  1. ESBRIET [Suspect]
     Active Substance: PIRFENIDONE
     Indication: IDIOPATHIC PULMONARY FIBROSIS
     Route: 048
     Dates: start: 20141223
  2. DIAZEPAM. [Concomitant]
     Active Substance: DIAZEPAM
  3. PLAVIX [Concomitant]
     Active Substance: CLOPIDOGREL BISULFATE
  4. MAGNESIUM HYDROXIDE. [Concomitant]
     Active Substance: MAGNESIUM HYDROXIDE
  5. MAALOX ANTACID [Concomitant]
     Active Substance: ALUMINUM HYDROXIDE\DIMETHICONE\MAGNESIUM HYDROXIDE
  6. LANTUS [Concomitant]
     Active Substance: INSULIN GLARGINE
  7. ZOFRAN [Concomitant]
     Active Substance: ONDANSETRON HYDROCHLORIDE
  8. BISACODYL. [Concomitant]
     Active Substance: BISACODYL
  9. BACITRACIN. [Concomitant]
     Active Substance: BACITRACIN
  10. TYLENOL [Concomitant]
     Active Substance: ACETAMINOPHEN
  11. ZETIA [Concomitant]
     Active Substance: EZETIMIBE
  12. ALBUTEROL. [Concomitant]
     Active Substance: ALBUTEROL
  13. LOVENOX [Concomitant]
     Active Substance: ENOXAPARIN SODIUM
  14. FEXOFENADINE [Concomitant]
     Active Substance: FEXOFENADINE\FEXOFENADINE HYDROCHLORIDE
  15. GUAFENISEN [Concomitant]
  16. DEXTROSE. [Concomitant]
     Active Substance: DEXTROSE
  17. MIDODRINE [Concomitant]
     Active Substance: MIDODRINE
  18. SINGULAIR [Concomitant]
     Active Substance: MONTELUKAST SODIUM
  19. PREDNISONE. [Concomitant]
     Active Substance: PREDNISONE
  20. FLOMAX [Concomitant]
     Active Substance: TAMSULOSIN HYDROCHLORIDE
  21. TRIMETHOPRIM. [Concomitant]
     Active Substance: TRIMETHOPRIM
  22. PERFENAZINE [Concomitant]
     Active Substance: PERPHENAZINE
  23. AMITRIPTYLINE [Concomitant]
     Active Substance: AMITRIPTYLINE
  24. HYDROCORTISONE. [Concomitant]
     Active Substance: HYDROCORTISONE

REACTIONS (1)
  - Death [Fatal]

NARRATIVE: CASE EVENT DATE: 20141225
